FAERS Safety Report 5007545-4 (Version None)
Quarter: 2006Q2

REPORT INFORMATION
  Report Type: 
  Country: None (occurrence: None)
  Receive Date: 20060522
  Receipt Date: 20060427
  Transmission Date: 20061013
  Serious: Yes (Other)
  Sender: FDA-Public Use
  Company Number: 2006AP02013

PATIENT
  Age: 31893 Day
  Sex: Female
  Weight: 35 kg

DRUGS (9)
  1. OMEPRAL [Suspect]
     Indication: REFLUX OESOPHAGITIS
     Route: 048
     Dates: start: 20060407, end: 20060413
  2. WARFARIN SODIUM [Interacting]
     Indication: CEREBRAL INFARCTION
     Route: 048
  3. WARFARIN SODIUM [Interacting]
     Indication: ATRIAL FIBRILLATION
     Route: 048
  4. WARFARIN SODIUM [Interacting]
     Route: 048
     Dates: start: 20060331, end: 20060408
  5. WARFARIN SODIUM [Interacting]
     Route: 048
     Dates: start: 20060331, end: 20060408
  6. WARFARIN SODIUM [Interacting]
     Route: 048
     Dates: start: 20060413
  7. WARFARIN SODIUM [Interacting]
     Route: 048
     Dates: start: 20060413
  8. PREDONINE [Concomitant]
     Route: 048
     Dates: start: 20060301, end: 20060408
  9. ZANTAC [Concomitant]
     Indication: REFLUX OESOPHAGITIS
     Route: 048
     Dates: end: 20060407

REACTIONS (8)
  - BONE DISORDER [None]
  - CONTUSION [None]
  - DRUG INTERACTION [None]
  - FALL [None]
  - INJURY [None]
  - INTERNATIONAL NORMALISED RATIO INCREASED [None]
  - MELAENA [None]
  - RHEUMATOID ARTHRITIS [None]
